FAERS Safety Report 17638279 (Version 7)
Quarter: 2022Q4

REPORT INFORMATION
  Report Type: Report from Study
  Country: GB (occurrence: GB)
  Receive Date: 20200407
  Receipt Date: 20221026
  Transmission Date: 20230113
  Serious: Yes (Hospitalization, Other)
  Sender: FDA-Public Use
  Company Number: GB-JNJFOC-20200327628

PATIENT

DRUGS (24)
  1. DEXAMETHASONE [Suspect]
     Active Substance: DEXAMETHASONE
     Indication: Plasma cell myeloma
     Dosage: 12 MG CYCLE 9+: ON DAYS 1,2,8,9,15,16,22,23 OF 35 DAY CYCLE
     Route: 048
     Dates: start: 20190222, end: 20191130
  2. DEXAMETHASONE [Suspect]
     Active Substance: DEXAMETHASONE
     Dosage: 8 MG
     Route: 048
     Dates: start: 20191213, end: 20200229
  3. DEXAMETHASONE [Suspect]
     Active Substance: DEXAMETHASONE
     Dosage: 20 MG: CYCLE 1-8: ON DAYS 1,2,4,5,8,9,11,12 OF 21
     Route: 048
     Dates: start: 20170428, end: 20190119
  4. DEXAMETHASONE [Suspect]
     Active Substance: DEXAMETHASONE
     Dosage: C9+, DAY 1, 2, 8, 9, 15, 16, 22 AND 23 OF 35D CYCLE (8MG)
     Route: 048
     Dates: start: 20200327
  5. BORTEZOMIB [Suspect]
     Active Substance: BORTEZOMIB
     Indication: Plasma cell myeloma
     Dosage: 2.5 MG/M2 CYCLE 1-8: ON DAYS 1,4,8,11 OF 21 DAY CYCLE
     Route: 058
     Dates: start: 20170428, end: 20170814
  6. BORTEZOMIB [Suspect]
     Active Substance: BORTEZOMIB
     Dosage: 1.95 MG/M2
     Route: 058
     Dates: start: 20200207, end: 20200228
  7. BORTEZOMIB [Suspect]
     Active Substance: BORTEZOMIB
     Dosage: 2 MG/M2: C9+: DAYS 1,8,15 AND 22 OF 35 DAY CYCLE
     Route: 058
     Dates: start: 20170821, end: 20200131
  8. VENETOCLAX [Suspect]
     Active Substance: VENETOCLAX
     Indication: Plasma cell myeloma
     Dosage: 600 MG
     Route: 048
     Dates: start: 20171012, end: 20200305
  9. VENETOCLAX [Suspect]
     Active Substance: VENETOCLAX
     Dosage: 800 MG, CYCLE 1-8: 21 D-
     Route: 048
     Dates: start: 20170428, end: 20171011
  10. VENETOCLAX [Suspect]
     Active Substance: VENETOCLAX
     Dosage: 400 MG
     Route: 048
     Dates: start: 20200327
  11. LANSOPRAZOLE [Concomitant]
     Active Substance: LANSOPRAZOLE
     Indication: Gastrooesophageal reflux disease
     Dosage: 30 MG, QD
     Route: 048
     Dates: start: 20171115
  12. COTRIMOXAZOLE [Concomitant]
     Active Substance: SULFAMETHOXAZOLE\TRIMETHOPRIM
     Indication: Antibiotic prophylaxis
     Dosage: 2880 MG (960MG, 3 IN 1 WK)
     Route: 048
     Dates: start: 20170428, end: 20190328
  13. COTRIMOXAZOLE [Concomitant]
     Active Substance: SULFAMETHOXAZOLE\TRIMETHOPRIM
     Dosage: 2880 MG WEEKLY (960MG, 3 IN 1 WK)
     Route: 048
     Dates: start: 20190329
  14. COTRIMOXAZOLE [Concomitant]
     Active Substance: SULFAMETHOXAZOLE\TRIMETHOPRIM
     Dosage: 2880 MG WEEKLY (960MG, 3 IN 1 WK)
     Route: 048
     Dates: start: 20170428, end: 20190329
  15. ALLOPURINOL [Concomitant]
     Active Substance: ALLOPURINOL
     Indication: Tumour lysis syndrome
     Dosage: 300 MG, QD
     Route: 048
     Dates: start: 20170428, end: 20170518
  16. DOXYCYCLINE [Concomitant]
     Active Substance: DOXYCYCLINE
     Indication: Antibiotic prophylaxis
     Dosage: 400 MG, QD
     Route: 048
     Dates: start: 20190329, end: 20200220
  17. DOXYCYCLINE [Concomitant]
     Active Substance: DOXYCYCLINE
     Dosage: 200MG (100MG, 2 IN 1 D)
     Route: 048
     Dates: start: 20190329
  18. ZOMETA [Concomitant]
     Active Substance: ZOLEDRONIC ACID
     Indication: Plasma cell myeloma
     Dosage: 3 MG
     Route: 042
     Dates: start: 20170619
  19. ZOMETA [Concomitant]
     Active Substance: ZOLEDRONIC ACID
     Dosage: 3 MG
     Route: 042
  20. ACYCLOVIR [Concomitant]
     Active Substance: ACYCLOVIR
     Indication: Prophylaxis
     Dosage: 600 MG (200MG, 3 IN 1 D)
     Route: 048
     Dates: start: 20170428
  21. PNEUMOCOCCAL VACCINE POLYVALENT [Concomitant]
     Active Substance: PNEUMOCOCCAL VACCINE POLYVALENT
     Indication: Prophylaxis
     Dosage: UNK
     Route: 065
     Dates: start: 20200224, end: 20200224
  22. PNEUMOCOCCAL VACCINE POLYVALENT [Concomitant]
     Active Substance: PNEUMOCOCCAL VACCINE POLYVALENT
     Indication: Pneumococcal immunisation
  23. SODIUM BICARBONATE [Concomitant]
     Active Substance: SODIUM BICARBONATE
     Indication: Scleral disorder
     Dosage: UNK
     Route: 065
  24. SODIUM BICARBONATE [Concomitant]
     Active Substance: SODIUM BICARBONATE
     Indication: Lacrimation increased

REACTIONS (5)
  - Influenza B virus test positive [Recovered/Resolved]
  - Influenza [Recovered/Resolved]
  - Upper respiratory tract infection [Recovered/Resolved]
  - Febrile neutropenia [Unknown]
  - Platelet count decreased [Unknown]

NARRATIVE: CASE EVENT DATE: 20200306
